FAERS Safety Report 4268843-5 (Version None)
Quarter: 2004Q1

REPORT INFORMATION
  Report Type: 
  Country: None (occurrence: None)
  Receive Date: 20040112
  Receipt Date: 20040112
  Transmission Date: 20041129
  Serious: Yes (Hospitalization)
  Sender: FDA-Public Use
  Company Number: None

PATIENT
  Age: 52 Year
  Sex: Male
  Weight: 72.1219 kg

DRUGS (2)
  1. VIOXX [Suspect]
     Indication: RASH
     Dates: start: 20021101, end: 20021201
  2. BEXTRA [Suspect]
     Indication: HEPATITIS
     Dates: start: 20030101, end: 20030201

REACTIONS (3)
  - ASTHENIA [None]
  - HEPATIC ENZYME INCREASED [None]
  - RASH [None]
